FAERS Safety Report 24175773 (Version 2)
Quarter: 2025Q2

REPORT INFORMATION
  Report Type: Report from Study
  Country: CA (occurrence: CA)
  Receive Date: 20240805
  Receipt Date: 20250526
  Transmission Date: 20250717
  Serious: Yes (Other)
  Sender: TAKEDA
  Company Number: CA-TAKEDA-2024TUS077485

PATIENT
  Sex: Female

DRUGS (4)
  1. VEDOLIZUMAB [Suspect]
     Active Substance: VEDOLIZUMAB
     Indication: Colitis ulcerative
  2. VEDOLIZUMAB [Suspect]
     Active Substance: VEDOLIZUMAB
  3. IMURAN [Concomitant]
     Active Substance: AZATHIOPRINE
  4. PENTASA [Concomitant]
     Active Substance: MESALAMINE

REACTIONS (4)
  - Hidradenitis [Recovering/Resolving]
  - Rash pruritic [Not Recovered/Not Resolved]
  - Flank pain [Not Recovered/Not Resolved]
  - Cough [Not Recovered/Not Resolved]
